FAERS Safety Report 4353089-2 (Version None)
Quarter: 2004Q2

REPORT INFORMATION
  Report Type: 
  Country: None (occurrence: None)
  Receive Date: 20040429
  Receipt Date: 20040426
  Transmission Date: 20050107
  Serious: Yes (Hospitalization)
  Sender: FDA-Public Use
  Company Number: 2001081227DE

PATIENT
  Age: 44 Year
  Sex: Female
  Weight: 99 kg

DRUGS (4)
  1. GENOTROPIN [Suspect]
     Indication: HYPOPITUITARISM
     Dosage: 0.4 MG, QD, SUBCUTANEOUS; 0.9 IU, DAILY, SUBCUTANEOUS
     Route: 058
     Dates: start: 20001128, end: 20010905
  2. GENOTROPIN [Suspect]
     Indication: HYPOPITUITARISM
     Dosage: 0.4 MG, QD, SUBCUTANEOUS; 0.9 IU, DAILY, SUBCUTANEOUS
     Route: 058
     Dates: start: 20021017
  3. CLIMEN (CYPROTERONE) [Concomitant]
  4. ACTONEL [Concomitant]

REACTIONS (2)
  - NEOPLASM RECURRENCE [None]
  - PITUITARY TUMOUR BENIGN [None]
